FAERS Safety Report 18326951 (Version 2)
Quarter: 2020Q4

REPORT INFORMATION
  Report Type: Report from Study
  Country: US (occurrence: US)
  Receive Date: 20200930
  Receipt Date: 20201007
  Transmission Date: 20210113
  Serious: Yes (Hospitalization)
  Sender: FDA-Public Use
  Company Number: US-BIOGEN-2020BI00927780

PATIENT
  Age: 41 Year
  Sex: Male

DRUGS (2)
  1. TECFIDERA [Suspect]
     Active Substance: DIMETHYL FUMARATE
     Indication: MULTIPLE SCLEROSIS
     Dosage: MAINTENANCE DOSE
     Route: 048
     Dates: start: 202007
  2. IBUPROFEN. [Suspect]
     Active Substance: IBUPROFEN
     Indication: JOINT INJURY
     Route: 065

REACTIONS (3)
  - Haematemesis [Unknown]
  - Ulcer [Unknown]
  - Joint injury [Unknown]

NARRATIVE: CASE EVENT DATE: 202009
